FAERS Safety Report 7469714-3 (Version None)
Quarter: 2011Q2

REPORT INFORMATION
  Report Type: 
  Country: None (occurrence: None)
  Receive Date: 20110510
  Receipt Date: 20110505
  Transmission Date: 20111010
  Serious: Yes (Other)
  Sender: FDA-Public Use
  Company Number: FR-BRISTOL-MYERS SQUIBB COMPANY-15491814

PATIENT
  Age: 32 Year
  Sex: Male

DRUGS (1)
  1. IRBESARTAN [Suspect]
     Route: 065
     Dates: start: 20030101, end: 20090101

REACTIONS (2)
  - ANGIOEDEMA [None]
  - OCCUPATIONAL EXPOSURE TO DRUG [None]
